FAERS Safety Report 8550160 (Version 2)
Quarter: 2012Q4

REPORT INFORMATION
  Report Type: Report from Study
  Country: DE (occurrence: DE)
  Receive Date: 20120507
  Receipt Date: 20120928
  Transmission Date: 20130627
  Serious: Yes (Hospitalization)
  Sender: FDA-Public Use
  Company Number: DE-TEVA-336071USA

PATIENT
  Age: 71 Year
  Sex: Female
  Weight: 72 kg

DRUGS (2)
  1. TREANDA [Suspect]
     Indication: NEOPLASM MALIGNANT
     Route: 042
     Dates: start: 20101221
  2. RITUXIMAB [Suspect]
     Indication: NEOPLASM MALIGNANT
     Route: 042
     Dates: start: 20101220

REACTIONS (1)
  - General physical health deterioration [Recovered/Resolved]
